FAERS Safety Report 6102462-0 (Version None)
Quarter: 2009Q1

REPORT INFORMATION
  Report Type: 
  Country: None (occurrence: None)
  Receive Date: 20090304
  Receipt Date: 20090224
  Transmission Date: 20090719
  Serious: Yes (Hospitalization)
  Sender: FDA-Public Use
  Company Number: US-GENENTECH-277440

PATIENT
  Sex: Female
  Weight: 53.061 kg

DRUGS (1)
  1. LUCENTIS [Suspect]
     Indication: MACULAR DEGENERATION
     Dosage: UNK
     Dates: start: 20060701

REACTIONS (3)
  - BURNING SENSATION [None]
  - PAIN [None]
  - ROAD TRAFFIC ACCIDENT [None]
